FAERS Safety Report 16012936 (Version 1)
Quarter: 2019Q1

REPORT INFORMATION
  Report Type: Spontaneous
  Country: US (occurrence: US)
  Receive Date: 20190227
  Receipt Date: 20190227
  Transmission Date: 20190418
  Serious: No
  Sender: FDA-Public Use
  Company Number: US-PFIZER INC-2015120658

PATIENT
  Age: 66 Year
  Sex: Male
  Weight: 83.91 kg

DRUGS (1)
  1. LYRICA [Suspect]
     Active Substance: PREGABALIN
     Indication: ARTHRALGIA
     Dosage: 150 MG, 3X/DAY
     Dates: end: 201812

REACTIONS (3)
  - Product use in unapproved indication [Unknown]
  - Burning sensation [Not Recovered/Not Resolved]
  - Intentional product misuse [Unknown]
